FAERS Safety Report 4717632-3 (Version None)
Quarter: 2005Q3

REPORT INFORMATION
  Report Type: 
  Country: None (occurrence: None)
  Receive Date: 20050713
  Receipt Date: 20050420
  Transmission Date: 20060218
  Serious: Yes (Other)
  Sender: FDA-Public Use
  Company Number: 402740

PATIENT
  Sex: Male
  Weight: 2.2 kg

DRUGS (2)
  1. FUZEON [Suspect]
     Indication: HIV INFECTION
     Dosage: SUBCUTANEOUS
     Route: 058
     Dates: start: 20050217, end: 20050218
  2. AZT [Concomitant]

REACTIONS (2)
  - NORMAL NEWBORN [None]
  - PREMATURE LABOUR [None]
